FAERS Safety Report 10213317 (Version 1)
Quarter: 2014Q2

REPORT INFORMATION
  Report Type: Spontaneous
  Country: US (occurrence: None)
  Receive Date: 20140530
  Receipt Date: 20140530
  Transmission Date: 20141212
  Serious: Yes (Hospitalization)
  Sender: FDA-Public Use
  Company Number: None

PATIENT
  Age: 85 Year
  Sex: Male
  Weight: 97.9 kg

DRUGS (3)
  1. LOSARTAN [Suspect]
     Indication: HYPERTENSION
     Dosage: 100 MG, EVERY DAY, PO?
     Route: 048
     Dates: start: 20130609, end: 20140322
  2. LOSARTAN [Suspect]
     Indication: ATRIAL FIBRILLATION
     Dosage: 100 MG, EVERY DAY, PO?
     Route: 048
     Dates: start: 20130609, end: 20140322
  3. LOSARTAN [Suspect]
     Indication: CORONARY ARTERY DISEASE
     Dosage: 100 MG, EVERY DAY, PO?
     Route: 048
     Dates: start: 20130609, end: 20140322

REACTIONS (2)
  - Angioedema [None]
  - Swollen tongue [None]
